FAERS Safety Report 7934027-X (Version None)
Quarter: 2011Q4

REPORT INFORMATION
  Report Type: 
  Country: None (occurrence: None)
  Receive Date: 20111122
  Receipt Date: 20111107
  Transmission Date: 20120403
  Serious: Yes (Hospitalization)
  Sender: FDA-Public Use
  Company Number: US-ROCHE-338011

PATIENT
  Age: 56 Year
  Sex: Female
  Weight: 62.3 kg

DRUGS (7)
  1. HYDROCHLOROTHIAZIDE [Suspect]
     Indication: PRODUCT USED FOR UNKNOWN INDICATION
     Route: 065
  2. HERCEPTIN [Suspect]
     Dosage: MAINTENANCE DOSE
     Route: 042
  3. DOXORUBICIN HCL [Suspect]
     Indication: BREAST CANCER
     Dosage: ADMINISTERED ON DAY 1 OF A 21 DAY CYCLE FOR 4 CYCLES
     Route: 042
     Dates: start: 20020829, end: 20021107
  4. HERCEPTIN [Suspect]
     Indication: BREAST CANCER
     Dosage: STARTING ON WEEK 25, LOADING DOSE
     Route: 042
     Dates: start: 20021107, end: 20030213
  5. PACLITAXEL [Suspect]
     Indication: BREAST CANCER
     Dosage: STARTING ON WEEK 13, FOR 12 WEEKS
     Route: 042
     Dates: start: 20021114, end: 20030213
  6. TAMOXIFEN CITRATE [Suspect]
     Indication: BREAST CANCER
     Route: 048
  7. CYCLOPHOSPHAMIDE [Suspect]
     Indication: BREAST CANCER
     Dosage: ADMINISTERED ON DAY 1 OF A 21 DAY CYCLE FOR 4 CYCLES
     Route: 042
     Dates: start: 20020829, end: 20021107

REACTIONS (2)
  - PANCREATITIS [None]
  - HYPERTRIGLYCERIDAEMIA [None]
